FAERS Safety Report 5978245-9 (Version None)
Quarter: 2008Q4

REPORT INFORMATION
  Report Type: 
  Country: None (occurrence: None)
  Receive Date: 20081204
  Receipt Date: 20081126
  Transmission Date: 20090506
  Serious: Yes (Hospitalization)
  Sender: FDA-Public Use
  Company Number: JP-BAYER-200812902BYL

PATIENT
  Age: 60 Year
  Sex: Male
  Weight: 59 kg

DRUGS (9)
  1. NEXAVAR [Suspect]
     Indication: RENAL CELL CARCINOMA STAGE IV
     Dosage: UNIT DOSE: 200 MG
     Route: 048
     Dates: start: 20080708, end: 20080731
  2. NEXAVAR [Suspect]
     Dosage: UNIT DOSE: 200 MG
     Route: 048
     Dates: start: 20080801, end: 20080820
  3. NEXAVAR [Suspect]
     Dosage: UNIT DOSE: 200 MG
     Route: 048
     Dates: start: 20080902, end: 20081009
  4. NEXAVAR [Suspect]
     Dosage: UNIT DOSE: 200 MG
     Route: 048
     Dates: start: 20081010
  5. HIRUDOID [Concomitant]
     Route: 061
  6. ZOMETA [Concomitant]
     Indication: METASTASES TO BONE
     Route: 041
     Dates: start: 20080725
  7. GARASONE [Concomitant]
     Indication: SKIN ULCER
     Route: 061
     Dates: start: 20080821
  8. LOPEMIN [Concomitant]
     Route: 048
     Dates: start: 20081024
  9. LAC-B [Concomitant]
     Route: 048

REACTIONS (4)
  - ALOPECIA [None]
  - BLOOD AMYLASE INCREASED [None]
  - DIARRHOEA [None]
  - HEPATIC FUNCTION ABNORMAL [None]
